FAERS Safety Report 5449083-0 (Version None)
Quarter: 2007Q3

REPORT INFORMATION
  Report Type: 
  Country: None (occurrence: None)
  Receive Date: 20070911
  Receipt Date: 20070830
  Transmission Date: 20080115
  Serious: Yes (Disabling)
  Sender: FDA-Public Use
  Company Number: GB-ELI_LILLY_AND_COMPANY-GB200708006976

PATIENT
  Age: 70 Year
  Sex: Female
  Weight: 35 kg

DRUGS (5)
  1. FORTEO [Suspect]
     Indication: OSTEOPOROSIS
     Dosage: UNK, UNKNOWN
     Route: 065
     Dates: start: 20070719, end: 20070724
  2. DICLOFENAC [Concomitant]
     Dosage: 75 MG, 2/D
     Route: 065
  3. METHOTREXATE [Concomitant]
     Dosage: 20 MG, UNKNOWN
     Route: 048
  4. PREDNISOLONE [Concomitant]
     Dosage: 7.5 MG, UNKNOWN
     Route: 065
  5. RAMIPRIL [Concomitant]

REACTIONS (1)
  - JOINT SWELLING [None]
